FAERS Safety Report 12950519 (Version 1)
Quarter: 2016Q4

REPORT INFORMATION
  Report Type: Report from Study
  Country: US (occurrence: US)
  Receive Date: 20161116
  Receipt Date: 20161116
  Transmission Date: 20170207
  Serious: Yes (Other)
  Sender: FDA-Public Use
  Company Number: US-IPSEN-CABO-16007538

PATIENT
  Sex: Male

DRUGS (3)
  1. CABOMETYX [Suspect]
     Active Substance: CABOZANTINIB S-MALATE
     Indication: RENAL CANCER
     Dosage: 60 MG, QD
     Route: 048
     Dates: start: 20160808
  2. LENVIMA [Concomitant]
     Active Substance: LENVATINIB
  3. AFINITOR [Concomitant]
     Active Substance: EVEROLIMUS

REACTIONS (2)
  - Pneumonitis [Unknown]
  - Hepatitis [Unknown]
